FAERS Safety Report 17834835 (Version 2)
Quarter: 2020Q2

REPORT INFORMATION
  Report Type: Report from Study
  Country: None (occurrence: CA)
  Receive Date: 20200528
  Receipt Date: 20200529
  Transmission Date: 20200714
  Serious: Yes (Hospitalization)
  Sender: FDA-Public Use
  Company Number: CA-ABBVIE-20K-028-3419204-00

PATIENT
  Sex: Female

DRUGS (1)
  1. HUMIRA [Suspect]
     Active Substance: ADALIMUMAB
     Indication: CROHN^S DISEASE
     Route: 058
     Dates: start: 20170503

REACTIONS (5)
  - Flatulence [Recovered/Resolved]
  - Memory impairment [Not Recovered/Not Resolved]
  - Dyspepsia [Unknown]
  - Blood blister [Unknown]
  - Ileus paralytic [Unknown]

NARRATIVE: CASE EVENT DATE: 2020
